FAERS Safety Report 6684851-9 (Version None)
Quarter: 2010Q2

REPORT INFORMATION
  Report Type: 
  Country: None (occurrence: None)
  Receive Date: 20100416
  Receipt Date: 20100416
  Transmission Date: 20101027
  Serious: Yes (Hospitalization)
  Sender: FDA-Public Use
  Company Number: GB-PERRIGO-10GB008770

PATIENT
  Age: 56 Year
  Sex: Male

DRUGS (1)
  1. NAPROXEN SODIUM 12063/0054 250 MG [Suspect]
     Indication: OSTEOARTHRITIS
     Dosage: 250 MG, BID
     Route: 048
     Dates: start: 20090427, end: 20100405

REACTIONS (1)
  - GASTROINTESTINAL HAEMORRHAGE [None]
